FAERS Safety Report 8979611 (Version 2)
Quarter: 2013Q1

REPORT INFORMATION
  Report Type: Spontaneous
  Country: US (occurrence: US)
  Receive Date: 20121221
  Receipt Date: 20130111
  Transmission Date: 20140127
  Serious: Yes (Hospitalization, Other)
  Sender: FDA-Public Use
  Company Number: US-VERTEX PHARMACEUTICALS INC.-2012-026442

PATIENT
  Age: 13 Year
  Sex: Female

DRUGS (17)
  1. INCIVEK [Suspect]
     Indication: HEPATITIS C
     Dosage: 750 MG, TID
     Dates: start: 20121127, end: 20121223
  2. RIBAVIRIN [Suspect]
     Indication: HEPATITIS C
     Dosage: 400 MG, UNK
     Route: 048
     Dates: start: 20100603, end: 20121223
  3. PEGINTRON [Suspect]
     Indication: HEPATITIS C
     Dosage: 66.5 ?G, QW
     Route: 058
     Dates: start: 20100603, end: 20101221
  4. PEGASYS [Suspect]
     Indication: HEPATITIS C
     Dosage: 135 ?G, QW
     Route: 058
     Dates: start: 20110121, end: 20110708
  5. PEGASYS [Suspect]
     Dosage: 180 ?G, QW
     Route: 058
     Dates: start: 20110715, end: 20121223
  6. LIPITOR [Concomitant]
     Indication: BLOOD CHOLESTEROL INCREASED
     Dosage: 10 MG, QD
     Dates: start: 20121123, end: 20121223
  7. PROZAC [Concomitant]
     Indication: DEPRESSION
     Dosage: 20 MG, QD
  8. MULTIVITAMIN [Concomitant]
     Indication: ROUTINE HEALTH MAINTENANCE
     Dosage: 1 UNK, QD
  9. CELLCEPT [Concomitant]
     Indication: PROPHYLAXIS AGAINST TRANSPLANT REJECTION
     Dosage: 500 MG, BID
  10. PRILOSEC [Concomitant]
     Indication: GASTROOESOPHAGEAL REFLUX DISEASE
     Dosage: 20 MG, BID
  11. SODIUM BICARBONATE [Concomitant]
     Indication: RENAL TUBULAR ACIDOSIS
  12. URSODIOL [Concomitant]
     Dosage: 30 MG, TID
  13. ARANESP [Concomitant]
     Indication: ANAEMIA
     Dosage: 40 MG, QW
     Route: 058
  14. CALCIUM CARBONATE [Concomitant]
     Indication: BLOOD CALCIUM DECREASED
     Dosage: 1500 MG, BID
  15. MYCELEX [Concomitant]
     Dosage: 10 MG, QDX5
  16. CYCLOSPORINE [Concomitant]
     Indication: PROPHYLAXIS AGAINST TRANSPLANT REJECTION
     Dosage: 50 MG, BID
  17. ERGOCALCIFEROL [Concomitant]
     Indication: VITAMIN D DECREASED
     Dosage: 50000 UNK, QD

REACTIONS (9)
  - Arthritis bacterial [Not Recovered/Not Resolved]
  - Osteomyelitis [Not Recovered/Not Resolved]
  - Renal failure acute [None]
  - Coagulopathy [Recovered/Resolved]
  - Osteonecrosis [None]
  - Pyrexia [None]
  - Blood creatine phosphokinase increased [None]
  - Myoglobin urine present [None]
  - Off label use [None]
